FAERS Safety Report 8893424 (Version 1)
Quarter: 2012Q4

REPORT INFORMATION
  Report Type: 
  Country: US (occurrence: US)
  Receive Date: 20121108
  Receipt Date: 20121108
  Transmission Date: 20130627
  Serious: Yes (Other)
  Sender: FDA-Public Use
  Company Number: US-SANOFI-AVENTIS-2012SA081591

PATIENT
  Age: 65 Year
  Sex: Female

DRUGS (3)
  1. LANTUS SOLOSTAR [Suspect]
     Dosage: 40 units daily (30 units at night and then 10 units the next morning)
     Route: 058
  2. LANTUS SOLOSTAR [Suspect]
     Dosage: Dose:30 unit(s)
     Route: 058
     Dates: start: 2008
  3. SOLOSTAR [Suspect]
     Dates: start: 2008

REACTIONS (1)
  - Neoplasm malignant [Unknown]
